FAERS Safety Report 10327810 (Version 1)
Quarter: 2014Q3

REPORT INFORMATION
  Report Type: Report from Study
  Country: GB (occurrence: GB)
  Receive Date: 20140721
  Receipt Date: 20140721
  Transmission Date: 20150326
  Serious: Yes (Death)
  Sender: FDA-Public Use
  Company Number: GB-ROCHE-1436480

PATIENT
  Age: 76 Year
  Sex: Male

DRUGS (10)
  1. SODIUM CHLORIDE. [Concomitant]
     Active Substance: SODIUM CHLORIDE
     Indication: OESOPHAGEAL CARCINOMA
     Route: 042
     Dates: end: 20130502
  2. GLUCOSE 5% [Concomitant]
     Active Substance: DEXTROSE
     Indication: OESOPHAGEAL CARCINOMA
     Route: 042
     Dates: end: 20130502
  3. LOPERAMIDE [Concomitant]
     Active Substance: LOPERAMIDE
     Indication: OESOPHAGEAL CARCINOMA
     Route: 048
     Dates: end: 20130502
  4. DEXAMETHASONE (ORAL) [Concomitant]
     Route: 048
     Dates: end: 20130502
  5. ONDANSETRON [Concomitant]
     Active Substance: ONDANSETRON
     Indication: OESOPHAGEAL CARCINOMA
     Route: 048
     Dates: end: 20130502
  6. DOMPERIDONE [Concomitant]
     Active Substance: DOMPERIDONE
     Indication: OESOPHAGEAL CARCINOMA
     Route: 048
     Dates: end: 20130502
  7. EPIRUBICIN [Concomitant]
     Active Substance: EPIRUBICIN
     Indication: OESOPHAGEAL CARCINOMA
     Route: 040
     Dates: end: 20130502
  8. CAPECITABINE [Suspect]
     Active Substance: CAPECITABINE
     Indication: OESOPHAGEAL CARCINOMA
     Route: 048
     Dates: end: 20130502
  9. DEXAMETHASONE (ORAL) [Concomitant]
     Indication: OESOPHAGEAL CARCINOMA
     Route: 048
     Dates: end: 20130502
  10. OXALIPLATIN. [Concomitant]
     Active Substance: OXALIPLATIN
     Indication: OESOPHAGEAL CARCINOMA
     Route: 042
     Dates: end: 20130502

REACTIONS (1)
  - Death [Fatal]
